FAERS Safety Report 6253765-0 (Version None)
Quarter: 2009Q2

REPORT INFORMATION
  Report Type: 
  Country: None (occurrence: None)
  Receive Date: 20090630
  Receipt Date: 20090616
  Transmission Date: 20091009
  Serious: Yes (Other)
  Sender: FDA-Public Use
  Company Number: 09-066

PATIENT
  Age: 57 Year
  Sex: Female

DRUGS (8)
  1. CEFEPIME [Suspect]
     Indication: BACTERAEMIA
     Dosage: 4 G DAILY,
  2. CYTARABINE [Suspect]
     Indication: ACUTE MYELOID LEUKAEMIA
     Dosage: 100MG/M^2 FOR 7 DAYS,
  3. AMIKACIN [Suspect]
     Indication: FEBRILE NEUTROPENIA
     Dosage: 1 G PER DAY,
  4. MEROPENEM (MANUFACTURER UNKNOWN) [Suspect]
     Indication: FEBRILE NEUTROPENIA
     Dosage: 3 G PER DAY,
  5. TEICOPLANIN (MANUFACTURER UNKNOWN) [Suspect]
     Indication: FEBRILE NEUTROPENIA
     Dosage: 400 MG PER DAY,
  6. AMPHOTERICIN B (MANUFACTURER UNKNOWN) [Suspect]
     Indication: FEBRILE NEUTROPENIA
     Dosage: 3 MG/KG,
  7. IDARUBICIN [Concomitant]
  8. AMPHOTERICIN DEOXYCOLATE [Concomitant]

REACTIONS (6)
  - ALANINE AMINOTRANSFERASE INCREASED [None]
  - ASPARTATE AMINOTRANSFERASE INCREASED [None]
  - DRUG INTOLERANCE [None]
  - HEPATIC ENZYME INCREASED [None]
  - HEPATIC STEATOSIS [None]
  - HEPATOTOXICITY [None]
